FAERS Safety Report 7203155-9 (Version None)
Quarter: 2010Q4

REPORT INFORMATION
  Report Type: 
  Country: None (occurrence: None)
  Receive Date: 20101229
  Receipt Date: 20101216
  Transmission Date: 20110411
  Serious: Yes (Other)
  Sender: FDA-Public Use
  Company Number: FR-MYLANLABS-2010S1023548

PATIENT
  Age: 56 Year
  Sex: Male
  Weight: 75 kg

DRUGS (3)
  1. METHOTREXATE [Suspect]
     Indication: NON-HODGKIN'S LYMPHOMA STAGE IV
     Dosage: INFUSED OVER 30 MINS
     Route: 065
  2. GLUCOSE [Concomitant]
     Route: 042
  3. SODIUM BICARBONATE [Concomitant]
     Route: 042

REACTIONS (2)
  - FOOD INTERACTION [None]
  - RENAL FAILURE ACUTE [None]
